FAERS Safety Report 12139775 (Version 22)
Quarter: 2018Q1

REPORT INFORMATION
  Report Type: Report from Study
  Country: CA (occurrence: CA)
  Receive Date: 20160303
  Receipt Date: 20180316
  Transmission Date: 20180508
  Serious: Yes (Death, Hospitalization, Disabling, Other)
  Sender: FDA-Public Use
  Company Number: PHHY2014CA159199

PATIENT
  Age: 64 Year
  Sex: Female

DRUGS (8)
  1. OXYCONTIN [Concomitant]
     Active Substance: OXYCODONE HYDROCHLORIDE
     Indication: PRODUCT USED FOR UNKNOWN INDICATION
     Dosage: 10 MG, UNK
     Route: 065
  2. TYLENOL [Concomitant]
     Active Substance: ACETAMINOPHEN
     Indication: HEADACHE
     Dosage: 325 MG, 1-2 TABS EVERY 4 HRS AS NEEDED
     Route: 065
  3. DIAZEPAM. [Suspect]
     Active Substance: DIAZEPAM
     Indication: PRODUCT USED FOR UNKNOWN INDICATION
     Route: 065
  4. OXYCOCET [Concomitant]
     Active Substance: ACETAMINOPHEN\OXYCODONE HYDROCHLORIDE
     Indication: PRODUCT USED FOR UNKNOWN INDICATION
     Dosage: 5 MG, 1-2 TABS EVERY 4 HRS AS NEEDED
     Route: 065
  5. OXYNEO [Suspect]
     Active Substance: OXYCODONE
     Indication: PRODUCT USED FOR UNKNOWN INDICATION
     Dosage: 10 MG, TID (3 TIMES DAILY)
     Route: 065
  6. CYMBALTA [Concomitant]
     Active Substance: DULOXETINE HYDROCHLORIDE
     Indication: PRODUCT USED FOR UNKNOWN INDICATION
     Dosage: 30 MG, QD (DAILY)
     Route: 065
  7. SANDOSTATIN LAR DEPOT [Suspect]
     Active Substance: OCTREOTIDE ACETATE
     Indication: NEUROENDOCRINE TUMOUR
     Dosage: 30 MG, QMO (EVERY 4 WEEKS)
     Route: 030
     Dates: start: 20141031, end: 20180208
  8. PERCOCET [Concomitant]
     Active Substance: ACETAMINOPHEN\OXYCODONE HYDROCHLORIDE
     Indication: PRODUCT USED FOR UNKNOWN INDICATION
     Dosage: HALF TABLET, BID
     Route: 065

REACTIONS (41)
  - Walking disability [Unknown]
  - Lung disorder [Unknown]
  - Platelet count decreased [Unknown]
  - Product quality issue [Unknown]
  - Death [Fatal]
  - Lung neoplasm malignant [Unknown]
  - Rales [Unknown]
  - Muscle spasms [Unknown]
  - Asthenia [Unknown]
  - Sleep disorder [Unknown]
  - Pneumonia [Recovered/Resolved]
  - Back pain [Unknown]
  - Blood pressure increased [Unknown]
  - General physical health deterioration [Unknown]
  - Needle issue [Unknown]
  - Cachexia [Unknown]
  - Second primary malignancy [Unknown]
  - Musculoskeletal chest pain [Not Recovered/Not Resolved]
  - Axillary pain [Unknown]
  - Pain [Not Recovered/Not Resolved]
  - Fatigue [Unknown]
  - Decreased appetite [Unknown]
  - Body temperature decreased [Unknown]
  - Thyroid hormones increased [Unknown]
  - Septic shock [Recovering/Resolving]
  - Stress [Unknown]
  - Blood pressure diastolic decreased [Unknown]
  - Pyrexia [Unknown]
  - Haemoglobin decreased [Unknown]
  - Bone marrow failure [Unknown]
  - Wheezing [Unknown]
  - Malaise [Recovering/Resolving]
  - Pallor [Unknown]
  - Diarrhoea [Unknown]
  - Intestinal obstruction [Unknown]
  - Urinary tract infection [Unknown]
  - Feeling abnormal [Unknown]
  - Respiratory rate increased [Unknown]
  - Blood pressure systolic increased [Unknown]
  - Abdominal pain upper [Not Recovered/Not Resolved]
  - Vomiting [Unknown]

NARRATIVE: CASE EVENT DATE: 2014
